FAERS Safety Report 7417121-1 (Version None)
Quarter: 2011Q2

REPORT INFORMATION
  Report Type: 
  Country: None (occurrence: None)
  Receive Date: 20110407
  Receipt Date: 20110325
  Transmission Date: 20111010
  Serious: Yes (Hospitalization, Other)
  Sender: FDA-Public Use
  Company Number: 2011AP000448

PATIENT
  Age: 74 Year
  Sex: Female

DRUGS (3)
  1. CLARITHROMYCIN [Suspect]
     Indication: BRONCHITIS
     Dosage: 500 MG, BID,
  2. AMITRIPTYLINE (AMITRIPTYLINE) [Concomitant]
  3. LORAZEPAM [Concomitant]

REACTIONS (12)
  - PSYCHOMOTOR RETARDATION [None]
  - ABNORMAL BEHAVIOUR [None]
  - STATUS EPILEPTICUS [None]
  - DYSPHORIA [None]
  - CEREBRAL ATROPHY [None]
  - BLOOD CREATINE PHOSPHOKINASE INCREASED [None]
  - LETHARGY [None]
  - PRESSURE OF SPEECH [None]
  - NEUROTOXICITY [None]
  - DELIRIUM [None]
  - AGITATION [None]
  - LEUKOCYTOSIS [None]
